FAERS Safety Report 8094597-0 (Version None)
Quarter: 2011Q4

REPORT INFORMATION
  Report Type: 
  Country: None (occurrence: None)
  Receive Date: 20111222
  Receipt Date: 20111031
  Transmission Date: 20120403
  Serious: Yes (Hospitalization)
  Sender: FDA-Public Use
  Company Number: UTC-010553

PATIENT
  Age: 60 Year
  Sex: Female

DRUGS (1)
  1. TYVASO [Suspect]
     Indication: COR PULMONALE CHRONIC
     Dosage: INHALATION
     Route: 055
     Dates: start: 20110520

REACTIONS (2)
  - PNEUMONIA STAPHYLOCOCCAL [None]
  - CARDIAC FAILURE CONGESTIVE [None]
